FAERS Safety Report 10081180 (Version 3)
Quarter: 2014Q2

REPORT INFORMATION
  Report Type: Spontaneous
  Country: US (occurrence: US)
  Receive Date: 20140416
  Receipt Date: 20140625
  Transmission Date: 20141212
  Serious: No
  Sender: FDA-Public Use
  Company Number: US-PFIZER INC-2014102653

PATIENT
  Age: 39 Year
  Sex: Male

DRUGS (2)
  1. XALKORI [Suspect]
     Indication: LUNG NEOPLASM MALIGNANT
     Dosage: 250 MG, 2X/DAY
     Route: 048
     Dates: start: 20140121
  2. OMEPRAZOLE [Concomitant]
     Dosage: UNK, AS NEEDED

REACTIONS (3)
  - Abdominal distension [Unknown]
  - Abnormal faeces [Unknown]
  - Flatulence [Unknown]
